FAERS Safety Report 4710217-4 (Version None)
Quarter: 2005Q3

REPORT INFORMATION
  Report Type: 
  Country: None (occurrence: None)
  Receive Date: 20050709
  Receipt Date: 20050701
  Transmission Date: 20060218
  Serious: Yes (Other)
  Sender: FDA-Public Use
  Company Number: US-MERCK-0507USA00393

PATIENT
  Sex: Female

DRUGS (1)
  1. VIOXX [Suspect]
     Route: 048

REACTIONS (6)
  - ANXIETY [None]
  - EMOTIONAL DISORDER [None]
  - HYPERTENSION [None]
  - INSOMNIA [None]
  - MENTAL DISORDER [None]
  - TRANSIENT ISCHAEMIC ATTACK [None]
